FAERS Safety Report 25742212 (Version 1)
Quarter: 2025Q3

REPORT INFORMATION
  Report Type: Spontaneous
  Country: US (occurrence: US)
  Receive Date: 20250829
  Receipt Date: 20250829
  Transmission Date: 20251021
  Serious: Yes (Death, Other)
  Sender: AMGEN
  Company Number: US-AMGEN-USASP2025166118

PATIENT

DRUGS (7)
  1. PREDNISONE [Suspect]
     Active Substance: PREDNISONE
     Indication: Hormone-refractory prostate cancer
     Dosage: 5 MILLIGRAM, BID
     Route: 065
  2. FILGRASTIM [Suspect]
     Active Substance: FILGRASTIM
     Indication: Hormone-refractory prostate cancer
     Route: 065
  3. PEGFILGRASTIM [Suspect]
     Active Substance: PEGFILGRASTIM
     Indication: Hormone-refractory prostate cancer
     Route: 065
  4. DOCETAXEL [Suspect]
     Active Substance: DOCETAXEL
     Indication: Hormone-refractory prostate cancer
     Dosage: 40 MILLIGRAM/SQ. METER, Q2WK
     Route: 065
  5. DOCETAXEL [Suspect]
     Active Substance: DOCETAXEL
     Dosage: 40 MILLIGRAM/SQ. METER, Q2WK
     Route: 065
  6. DOCETAXEL [Suspect]
     Active Substance: DOCETAXEL
     Dosage: 50 MILLIGRAM/SQ. METER, Q2WK
     Route: 065
  7. RADIUM RA-223 DICHLORIDE [Suspect]
     Active Substance: RADIUM RA-223 DICHLORIDE
     Indication: Hormone-refractory prostate cancer
     Dosage: UNK, Q4WK
     Route: 065

REACTIONS (38)
  - Death [Fatal]
  - Cerebrovascular accident [Fatal]
  - Lymphopenia [Unknown]
  - Neutropenia [Unknown]
  - Leukopenia [Unknown]
  - Atrial fibrillation [Unknown]
  - Pulmonary embolism [Unknown]
  - Myelosuppression [Unknown]
  - Febrile neutropenia [Unknown]
  - Thrombocytopenia [Unknown]
  - Neuropathy peripheral [Unknown]
  - Hormone-refractory prostate cancer [Unknown]
  - Hypokalaemia [Unknown]
  - Thrombocytopenia [Unknown]
  - Haematochezia [Unknown]
  - Failure to thrive [Unknown]
  - Hypocalcaemia [Unknown]
  - Anaemia [Unknown]
  - Fatigue [Unknown]
  - Diarrhoea [Unknown]
  - Rash [Unknown]
  - White blood cell count decreased [Unknown]
  - Nausea [Unknown]
  - Weight decreased [Unknown]
  - Nail disorder [Unknown]
  - Alopecia [Unknown]
  - Oedema [Unknown]
  - Therapy partial responder [Unknown]
  - Dysgeusia [Unknown]
  - Hypophosphataemia [Unknown]
  - Lymphopenia [Unknown]
  - Decreased appetite [Unknown]
  - Bone pain [Unknown]
  - Ill-defined disorder [Unknown]
  - Epistaxis [Unknown]
  - Hypersensitivity [Unknown]
  - Infusion related reaction [Unknown]
  - Treatment failure [Unknown]
